FAERS Safety Report 20687659 (Version 1)
Quarter: 2022Q2

REPORT INFORMATION
  Report Type: Spontaneous
  Country: GB (occurrence: GB)
  Receive Date: 20220408
  Receipt Date: 20220408
  Transmission Date: 20220721
  Serious: Yes (Hospitalization)
  Sender: FDA-Public Use
  Company Number: GB-MHRA-MED-202203280826061350-OH1PJ

PATIENT
  Age: 88 Year
  Sex: Male

DRUGS (1)
  1. MIRTAZAPINE [Suspect]
     Active Substance: MIRTAZAPINE
     Dosage: INCREASED HIS DOSE FROM MIRTAZAPINE 15MG NOCTE TO MIRTAZAPINE 30MG NOCTE.
     Route: 065

REACTIONS (1)
  - Rapid eye movement sleep behaviour disorder [Recovered/Resolved]
